FAERS Safety Report 23009036 (Version 3)
Quarter: 2023Q4

REPORT INFORMATION
  Report Type: Report from Study
  Country: US (occurrence: US)
  Receive Date: 20230929
  Receipt Date: 20231215
  Transmission Date: 20240110
  Serious: No
  Sender: FDA-Public Use
  Company Number: US-AIMMUNE THERAPEUTICS, INC.-2023AIMT01032

PATIENT

DRUGS (2)
  1. VOWST [Suspect]
     Active Substance: DONOR HUMAN STOOL SPORES (ETHANOL TREATED)
     Indication: Clostridium difficile infection
     Dosage: 4 CAPSULES, AS ORDERED
     Route: 048
     Dates: start: 20230925
  2. VOWST [Suspect]
     Active Substance: DONOR HUMAN STOOL SPORES (ETHANOL TREATED)
     Dosage: 4 CAPSULES, ONCE, ONLY DOSE PRIOR TO EVENTS
     Route: 048
     Dates: start: 20230925, end: 20230925

REACTIONS (2)
  - Urinary tract infection [Unknown]
  - Micturition urgency [Unknown]

NARRATIVE: CASE EVENT DATE: 20230925
